FAERS Safety Report 5465341-8 (Version None)
Quarter: 2007Q3

REPORT INFORMATION
  Report Type: 
  Country: None (occurrence: None)
  Receive Date: 20070920
  Receipt Date: 20070920
  Transmission Date: 20080115
  Serious: Yes (Other)
  Sender: FDA-Public Use
  Company Number: None

PATIENT
  Sex: Male
  Weight: 155.1302 kg

DRUGS (1)
  1. OXYCONTIN [Suspect]
     Indication: ABDOMINAL PAIN
     Dosage: #75 Q 8 HRS. PO
     Route: 048
     Dates: start: 20070801

REACTIONS (3)
  - HYPERPHAGIA [None]
  - NAUSEA [None]
  - VOMITING [None]
